FAERS Safety Report 7645544-4 (Version None)
Quarter: 2011Q3

REPORT INFORMATION
  Report Type: 
  Country: None (occurrence: None)
  Receive Date: 20110729
  Receipt Date: 20110719
  Transmission Date: 20111222
  Serious: Yes (Other)
  Sender: FDA-Public Use
  Company Number: US-ROCHE-757401

PATIENT
  Sex: Female
  Weight: 54.4 kg

DRUGS (1)
  1. ACCUTANE [Suspect]
     Route: 065
     Dates: start: 19870101, end: 19890101

REACTIONS (7)
  - DEPRESSION [None]
  - INTESTINAL HAEMORRHAGE [None]
  - INFLAMMATORY BOWEL DISEASE [None]
  - MENTAL DISORDER [None]
  - GASTROINTESTINAL INJURY [None]
  - COLITIS ULCERATIVE [None]
  - PANIC ATTACK [None]
